FAERS Safety Report 7284284-0 (Version None)
Quarter: 2011Q1

REPORT INFORMATION
  Report Type: 
  Country: None (occurrence: None)
  Receive Date: 20110131
  Receipt Date: 20110121
  Transmission Date: 20110831
  Serious: Yes (Hospitalization)
  Sender: FDA-Public Use
  Company Number: 2010SP003621

PATIENT
  Age: 63 Year
  Sex: Female
  Weight: 66.6788 kg

DRUGS (19)
  1. PROTONIX [Concomitant]
  2. BENADRYL [Concomitant]
  3. COMPAZINE [Concomitant]
  4. SODIUM CHLORIDE [Concomitant]
  5. TIOTROPIUM BROMIDE [Concomitant]
  6. HEPARIN [Concomitant]
  7. MOMETASONE FUROATE [Concomitant]
  8. MECLIZINE /00072801/ [Concomitant]
  9. MAXZIDE [Concomitant]
  10. SPIRIVA [Concomitant]
  11. ASPIRIN [Concomitant]
  12. ALBUTEROL [Concomitant]
  13. VERAPAMIL [Concomitant]
  14. ATIVAN [Concomitant]
  15. TRIAMTERENE AND HYDROCHLOROTHIAZIDE [Concomitant]
  16. ISOVUE-128 [Concomitant]
  17. ARFORMOTEROL [Suspect]
     Indication: CHRONIC OBSTRUCTIVE PULMONARY DISEASE
     Dosage: 15 UG; INHALATION
     Route: 055
     Dates: start: 20100622, end: 20101218
  18. AZMACORT [Concomitant]
  19. OMEPRAZOLE [Concomitant]

REACTIONS (9)
  - HEADACHE [None]
  - OXYGEN SATURATION DECREASED [None]
  - DIZZINESS [None]
  - EMPHYSEMA [None]
  - LYMPHOCYTE COUNT DECREASED [None]
  - BLOOD BICARBONATE INCREASED [None]
  - PCO2 INCREASED [None]
  - VERTIGO [None]
  - WHITE BLOOD CELL COUNT DECREASED [None]
